FAERS Safety Report 11009568 (Version 1)
Quarter: 2015Q2

REPORT INFORMATION
  Report Type: Spontaneous
  Country: US (occurrence: None)
  Receive Date: 20150409
  Receipt Date: 20150409
  Transmission Date: 20150821
  Serious: Yes (Other)
  Sender: FDA-Public Use
  Company Number: None

PATIENT
  Age: 48 Year
  Sex: Female

DRUGS (2)
  1. BOTOX [Suspect]
     Active Substance: ONABOTULINUMTOXINA
     Indication: MIGRAINE
     Dosage: 200 UNITS?EVERY 3 MONTHS?HEAD, NECK, AND SHOULDERS
     Dates: start: 20140829
  2. BOTOX [Suspect]
     Active Substance: ONABOTULINUMTOXINA
     Dosage: 200 UNITS?EVERY 3 MONTHS?HEAD, NECK, AND SHOULDERS
     Dates: start: 20140829

REACTIONS (5)
  - Condition aggravated [None]
  - Migraine [None]
  - Nausea [None]
  - Immediate post-injection reaction [None]
  - Vomiting [None]

NARRATIVE: CASE EVENT DATE: 201409
